FAERS Safety Report 6129169-8 (Version None)
Quarter: 2009Q1

REPORT INFORMATION
  Report Type: 
  Country: None (occurrence: None)
  Receive Date: 20090323
  Receipt Date: 20090323
  Transmission Date: 20090719
  Serious: Yes (Life-Threatening)
  Sender: FDA-Public Use
  Company Number: None

PATIENT
  Age: 79 Year
  Sex: Male

DRUGS (1)
  1. BENAZEPRIL HYDROCHLORIDE [Suspect]
     Indication: HYPERTENSION
     Dosage: MG EVERY DAY PO
     Route: 048
     Dates: start: 20081201, end: 20090125

REACTIONS (14)
  - ANAPHYLACTIC REACTION [None]
  - ANGIOEDEMA [None]
  - BLOOD PRESSURE INCREASED [None]
  - DYSPNOEA [None]
  - HEART RATE INCREASED [None]
  - INCREASED UPPER AIRWAY SECRETION [None]
  - LARYNGEAL OEDEMA [None]
  - LIP SWELLING [None]
  - PHARYNGEAL OEDEMA [None]
  - PRURITUS [None]
  - PURPURA [None]
  - SWELLING FACE [None]
  - SWOLLEN TONGUE [None]
  - URTICARIA [None]
